FAERS Safety Report 20240404 (Version 1)
Quarter: 2021Q4

REPORT INFORMATION
  Report Type: Spontaneous
  Country: GB (occurrence: GB)
  Receive Date: 20211228
  Receipt Date: 20211228
  Transmission Date: 20220303
  Serious: Yes (Other)
  Sender: FDA-Public Use
  Company Number: GB-HQ SPECIALTY-GB-2021INT000248

PATIENT

DRUGS (2)
  1. CISPLATIN [Suspect]
     Active Substance: CISPLATIN
     Indication: Bladder cancer
     Dosage: 70 MG/M2, DAY 1 OF A 21 DAY CYCLE (4 CYCLES)
     Route: 065
  2. CABAZITAXEL [Concomitant]
     Active Substance: CABAZITAXEL
     Indication: Bladder cancer
     Dosage: 15 MG/M2 (4 CYCLES)
     Route: 065

REACTIONS (1)
  - Urosepsis [Unknown]
